FAERS Safety Report 21762166 (Version 1)
Quarter: 2022Q4

REPORT INFORMATION
  Report Type: Spontaneous
  Country: None (occurrence: US)
  Receive Date: 20221221
  Receipt Date: 20221221
  Transmission Date: 20230113
  Serious: No
  Sender: FDA-Public Use
  Company Number: US-GREER Laboratories, Inc.-2136059

PATIENT
  Age: 70 Year
  Sex: Female
  Weight: 47.273 kg

DRUGS (21)
  1. JOHNSON GRASS POLLEN [Suspect]
     Active Substance: SORGHUM HALEPENSE POLLEN
     Indication: Rhinitis allergic
     Route: 058
     Dates: start: 20220914
  2. ANTHOXANTHUM ODORATUM POLLEN\DACTYLIS GLOMERATA POLLEN\PHLEUM PRATENSE [Suspect]
     Active Substance: ANTHOXANTHUM ODORATUM POLLEN\DACTYLIS GLOMERATA POLLEN\PHLEUM PRATENSE POLLEN
     Route: 058
     Dates: start: 20220914
  3. GOLDENROD POLLEN [Suspect]
     Active Substance: SOLIDAGO CANADENSIS POLLEN
     Route: 058
     Dates: start: 20220914
  4. SHORT AND GIANT RAGWEED POLLEN MIX [Suspect]
     Active Substance: AMBROSIA ARTEMISIIFOLIA POLLEN\AMBROSIA TRIFIDA POLLEN
     Route: 058
     Dates: start: 20220914
  5. PIGWEED MIX [Suspect]
     Active Substance: AMARANTHUS HYBRIDUS POLLEN\AMARANTHUS PALMERI POLLEN\AMARANTHUS RETROFLEXUS POLLEN
     Route: 058
     Dates: start: 20220914
  6. 2 MAPLE POLLEN MIX [Suspect]
     Active Substance: ACER RUBRUM POLLEN\ACER SACCHARUM POLLEN
     Route: 058
     Dates: start: 20220914
  7. EASTERN OAK POLLEN MIX [Suspect]
     Active Substance: QUERCUS ALBA POLLEN\QUERCUS RUBRA POLLEN\QUERCUS VELUTINA POLLEN
     Route: 058
     Dates: start: 20220914
  8. RED CEDAR POLLEN [Suspect]
     Active Substance: JUNIPERUS VIRGINIANA POLLEN
     Route: 058
     Dates: start: 20220914
  9. BIRCH POLLEN MIX [Suspect]
     Active Substance: BETULA LENTA POLLEN\BETULA NIGRA POLLEN\BETULA POPULIFOLIA POLLEN
     Route: 058
     Dates: start: 20220914
  10. BLACK LOCUST BLOSSOM [Suspect]
     Active Substance: ROBINIA PSEUDOACACIA POLLEN
     Route: 058
     Dates: start: 20220914
  11. ALTERNARIA/HORMODENDRUM MIX [Suspect]
     Active Substance: ALTERNARIA ALTERNATA\ASPERGILLUS FUMIGATUS
     Route: 058
     Dates: start: 20220914
  12. ASPERGILLUS MIX [Suspect]
     Active Substance: ASPERGILLUS FLAVUS\ASPERGILLUS FUMIGATUS\ASPERGILLUS NIDULANS\ASPERGILLUS NIGER VAR. NIGER\EUROTIUM
     Route: 058
     Dates: start: 20220914
  13. CLADOSPORIUM HERBARUM [Suspect]
     Active Substance: CLADOSPORIUM HERBARUM
     Route: 058
     Dates: start: 20220914
  14. PENICILLIUM MIX [Suspect]
     Active Substance: PENICILLIUM CAMEMBERTI\PENICILLIUM CHRYSOGENUM VAR. CHRYSOGENUM\PENICILLIUM DIGITATUM\PENICILLIUM RO
     Route: 058
     Dates: start: 20220914
  15. STANDARDIZED MITE, DERMATOPHAGOIDES PTERONYSSINUS [Suspect]
     Active Substance: DERMATOPHAGOIDES PTERONYSSINUS
     Route: 058
     Dates: start: 20220914
  16. 2 COCKROACH MIX [Suspect]
     Active Substance: BLATELLA GERMANICA\PERIPLANETA AMERICANA
     Route: 058
     Dates: start: 20220914
  17. DOG EPITHELIA [Suspect]
     Active Substance: CANIS LUPUS FAMILIARIS SKIN
     Route: 058
     Dates: start: 20220914
  18. STANDARDIZED CAT HAIR [Suspect]
     Active Substance: FELIS CATUS HAIR
     Route: 058
     Dates: start: 20220914
  19. ALBUTEROL SULFATE [Concomitant]
     Active Substance: ALBUTEROL SULFATE
  20. SYMBICORT [Concomitant]
     Active Substance: BUDESONIDE\FORMOTEROL FUMARATE DIHYDRATE
  21. FAMOTIDINE [Concomitant]
     Active Substance: FAMOTIDINE

REACTIONS (1)
  - Wheezing [Recovered/Resolved]

NARRATIVE: CASE EVENT DATE: 20220914
